FAERS Safety Report 10183659 (Version 2)
Quarter: 2014Q2

REPORT INFORMATION
  Report Type: Spontaneous
  Country: FI (occurrence: FI)
  Receive Date: 20140520
  Receipt Date: 20140520
  Transmission Date: 20141212
  Serious: Yes (Hospitalization)
  Sender: FDA-Public Use
  Company Number: FI-ACTELION-A-CH2011-46611

PATIENT
  Age: 50 Year
  Sex: Female

DRUGS (18)
  1. TRACLEER [Suspect]
     Indication: SKIN ULCER
     Dosage: 125 MG, BID
     Route: 048
     Dates: start: 201101, end: 20110318
  2. TRACLEER [Suspect]
     Dosage: 62.5 MG, BID
     Route: 048
     Dates: start: 20101218, end: 201101
  3. TRACLEER [Suspect]
     Dosage: 62.5 MG, BID
     Route: 048
     Dates: start: 20110418, end: 20110815
  4. TRACLEER [Suspect]
     Dosage: 125 MG, BID
     Route: 048
     Dates: start: 20110816, end: 20131120
  5. TRACLEER [Suspect]
     Dosage: 93.75 MG, BID
     Route: 048
     Dates: start: 20131121, end: 20140218
  6. TRACLEER [Suspect]
     Dosage: 62.5 MG, BID
     Route: 048
     Dates: start: 20140219
  7. PREDNISOLON [Concomitant]
  8. ALENDRONAT [Concomitant]
  9. ATACAND [Concomitant]
  10. CYMBALTA [Concomitant]
  11. KALCIPOS-D [Concomitant]
  12. LYRICA [Concomitant]
  13. NEXIUM [Concomitant]
  14. NIFANGIN [Concomitant]
  15. PANADOL [Concomitant]
  16. PRIMASPAN [Concomitant]
  17. THYROXIN [Concomitant]
  18. PROGYNOVA [Concomitant]

REACTIONS (2)
  - Erysipelas [Recovered/Resolved]
  - Oedema peripheral [Recovered/Resolved]
